FAERS Safety Report 17266342 (Version 1)
Quarter: 2020Q1

REPORT INFORMATION
  Report Type: Spontaneous
  Country: CA (occurrence: CA)
  Receive Date: 20200114
  Receipt Date: 20200114
  Transmission Date: 20200409
  Serious: Yes (Other)
  Sender: FDA-Public Use
  Company Number: CA-TEVA-2020-CA-1166111

PATIENT
  Sex: Female

DRUGS (2)
  1. TAMOXIFEN [Suspect]
     Active Substance: TAMOXIFEN
     Dates: start: 201811, end: 201911
  2. LETROZOLE. [Suspect]
     Active Substance: LETROZOLE
     Dosage: 2.5
     Dates: start: 201601, end: 201810

REACTIONS (2)
  - Disease progression [Unknown]
  - Adverse drug reaction [Unknown]
